FAERS Safety Report 8140084-0 (Version None)
Quarter: 2012Q1

REPORT INFORMATION
  Report Type: 
  Country: None (occurrence: None)
  Receive Date: 20120215
  Receipt Date: 20120207
  Transmission Date: 20120608
  Serious: Yes (Hospitalization)
  Sender: FDA-Public Use
  Company Number: PL-BRISTOL-MYERS SQUIBB COMPANY-16387623

PATIENT
  Age: 3 Year
  Sex: Female

DRUGS (3)
  1. RITONAVIR [Suspect]
     Indication: HIV INFECTION
     Route: 048
     Dates: start: 20120110, end: 20120205
  2. ATAZANAVIR [Suspect]
     Indication: HIV INFECTION
     Route: 048
     Dates: start: 20120110, end: 20120205
  3. NYSTATIN [Concomitant]
     Dates: start: 20120131, end: 20120205

REACTIONS (3)
  - VOMITING [None]
  - ORTHOSTATIC HYPOTENSION [None]
  - VARICELLA [None]
